FAERS Safety Report 4669923-2 (Version None)
Quarter: 2005Q2

REPORT INFORMATION
  Report Type: 
  Country: None (occurrence: None)
  Receive Date: 20050523
  Receipt Date: 20050208
  Transmission Date: 20051028
  Serious: Yes (Other)
  Sender: FDA-Public Use
  Company Number: PHNU2005DE00866

PATIENT
  Age: 39 Year
  Sex: Male
  Weight: 83 kg

DRUGS (4)
  1. PROPRANOLOL [Concomitant]
     Dosage: 100 MG/DAY
     Route: 048
  2. DELIX [Concomitant]
     Dosage: 7.5 MG/DAY
     Route: 048
  3. LEPONEX / CLOZARIL (CLOZAPINE) [Suspect]
     Indication: SCHIZOPHRENIA
     Dosage: UP TO 600MG/DAY
     Route: 048
     Dates: start: 20050101, end: 20050211
  4. TAVOR [Concomitant]
     Indication: ANXIETY
     Dosage: 1 TO 3 MG/DAY
     Route: 048
     Dates: start: 20041118, end: 20050411

REACTIONS (10)
  - CATECHOLAMINES URINE [None]
  - CATECHOLAMINES URINE INCREASED [None]
  - EPINEPHRINE INCREASED [None]
  - HEADACHE [None]
  - HYPERHIDROSIS [None]
  - HYPERTENSION [None]
  - HYPERTENSIVE CRISIS [None]
  - NOREPINEPHRINE INCREASED [None]
  - PALPITATIONS [None]
  - PHAEOCHROMOCYTOMA [None]
